FAERS Safety Report 17105394 (Version 1)
Quarter: 2019Q4

REPORT INFORMATION
  Report Type: Spontaneous
  Country: SE (occurrence: SE)
  Receive Date: 20191203
  Receipt Date: 20191203
  Transmission Date: 20200122
  Serious: Yes (Hospitalization)
  Sender: FDA-Public Use
  Company Number: SE-TEVA-2019-SE-1145030

PATIENT
  Age: 24 Year
  Sex: Female

DRUGS (5)
  1. PROPAVAN [Suspect]
     Active Substance: PROPIOMAZINE
     Dosage: 12 ST
     Dates: start: 20180626, end: 20180626
  2. THERALEN [Suspect]
     Active Substance: TRIMEPRAZINE
     Dosage: 30 ST
     Dates: start: 20180626, end: 20180626
  3. OXASCAND [Suspect]
     Active Substance: OXAZEPAM
     Dosage: 25-30 ST
     Dates: start: 20180626, end: 20180626
  4. LERGIGAN (PROMETHAZINE HYDROCHLORIDE) [Suspect]
     Active Substance: PROMETHAZINE HYDROCHLORIDE
     Dosage: 30 ST
     Route: 048
     Dates: start: 20180626, end: 20180626
  5. RISPERDAL [Suspect]
     Active Substance: RISPERIDONE
     Dosage: 6 ST
     Dates: start: 20180626, end: 20180626

REACTIONS (2)
  - Intentional overdose [Unknown]
  - Intentional self-injury [Unknown]

NARRATIVE: CASE EVENT DATE: 20180626
